FAERS Safety Report 10762454 (Version 2)
Quarter: 2015Q1

REPORT INFORMATION
  Report Type: Spontaneous
  Country: JP (occurrence: JP)
  Receive Date: 20150204
  Receipt Date: 20150217
  Transmission Date: 20150721
  Serious: Yes (Hospitalization, Other)
  Sender: FDA-Public Use
  Company Number: PHHY2015JP011540

PATIENT
  Age: 88 Year
  Sex: Male

DRUGS (2)
  1. RIVASTACH [Suspect]
     Active Substance: RIVASTIGMINE
     Indication: DEMENTIA ALZHEIMER^S TYPE
     Dosage: 9.5 MG, QD (18 MG DAILY)
     Route: 062
  2. RIVASTACH [Suspect]
     Active Substance: RIVASTIGMINE
     Dosage: 144 MG, (EIGHT 18 MG PATCHES AT ONE TIME)
     Route: 062
     Dates: start: 20150125

REACTIONS (5)
  - Overdose [Unknown]
  - Pneumonia aspiration [Recovered/Resolved]
  - Speech disorder [Unknown]
  - Wrong technique in drug usage process [Unknown]
  - Fluid intake reduced [Unknown]

NARRATIVE: CASE EVENT DATE: 20150124
